FAERS Safety Report 19087017 (Version 1)
Quarter: 2021Q2

REPORT INFORMATION
  Report Type: Spontaneous
  Country: GB (occurrence: GB)
  Receive Date: 20210402
  Receipt Date: 20210402
  Transmission Date: 20210717
  Serious: Yes (Disabling, Other)
  Sender: FDA-Public Use
  Company Number: GB-NOVA LABORATORIES LIMITED-2108837

PATIENT
  Age: 45 Year
  Sex: Male
  Weight: 80 kg

DRUGS (2)
  1. AZATHIOPRINE. [Concomitant]
     Active Substance: AZATHIOPRINE
  2. PURIXAN [Suspect]
     Active Substance: MERCAPTOPURINE
     Indication: ILL-DEFINED DISORDER
     Route: 048
     Dates: start: 20210317, end: 20210317

REACTIONS (6)
  - Fatigue [Recovering/Resolving]
  - Chills [Recovering/Resolving]
  - Body temperature abnormal [Recovering/Resolving]
  - Gait disturbance [Recovering/Resolving]
  - Arthralgia [Recovering/Resolving]
  - Off label use [Unknown]
